FAERS Safety Report 7353305-9 (Version None)
Quarter: 2011Q1

REPORT INFORMATION
  Report Type: 
  Country: None (occurrence: None)
  Receive Date: 20110315
  Receipt Date: 20110301
  Transmission Date: 20110831
  Serious: Yes (Death, Hospitalization)
  Sender: FDA-Public Use
  Company Number: DE-ACTELION-A-CH2011-44894

PATIENT
  Age: 60 Year
  Sex: Male
  Weight: 78 kg

DRUGS (10)
  1. TRACLEER [Suspect]
     Dosage: 62.5 MG, QD
     Route: 048
     Dates: end: 20101001
  2. DELIX [Concomitant]
  3. TRACLEER [Suspect]
     Dosage: 62.5 MG, BID
     Route: 048
     Dates: start: 20090601, end: 20090701
  4. TRACLEER [Suspect]
     Indication: PULMONARY ARTERIAL HYPERTENSION
     Dosage: 125 MG, BID
     Route: 048
     Dates: start: 20090701
  5. TOREM [Concomitant]
  6. TRAMAL [Concomitant]
  7. OXYGEN [Concomitant]
  8. INSPRA [Concomitant]
  9. SILDENAFIL [Concomitant]
     Dosage: UNK
     Dates: start: 20101001, end: 20101210
  10. PANTOZOL [Concomitant]

REACTIONS (30)
  - PULMONARY ARTERIAL HYPERTENSION [None]
  - CONDITION AGGRAVATED [None]
  - JAUNDICE [None]
  - BLOOD GLUCOSE DECREASED [None]
  - THROMBOCYTOPENIA [None]
  - HYPOTENSION [None]
  - APHASIA [None]
  - GAMMA-GLUTAMYLTRANSFERASE INCREASED [None]
  - BLOOD BILIRUBIN INCREASED [None]
  - METABOLIC ACIDOSIS [None]
  - ANURIA [None]
  - ORTHOPNOEA [None]
  - SYNCOPE [None]
  - ALANINE AMINOTRANSFERASE INCREASED [None]
  - ACUTE HEPATIC FAILURE [None]
  - RENAL FAILURE [None]
  - CEREBRAL HAEMORRHAGE [None]
  - ACUTE RESPIRATORY FAILURE [None]
  - MECHANICAL VENTILATION [None]
  - BLOOD ALBUMIN DECREASED [None]
  - COAGULATION TEST ABNORMAL [None]
  - OEDEMA PERIPHERAL [None]
  - BLOOD ALKALINE PHOSPHATASE INCREASED [None]
  - MULTI-ORGAN FAILURE [None]
  - HEPATORENAL SYNDROME [None]
  - INTERNATIONAL NORMALISED RATIO INCREASED [None]
  - DECREASED APPETITE [None]
  - BLOOD CREATININE INCREASED [None]
  - OXYGEN SATURATION DECREASED [None]
  - ASPARTATE AMINOTRANSFERASE INCREASED [None]
